FAERS Safety Report 5570085-8 (Version None)
Quarter: 2007Q4

REPORT INFORMATION
  Report Type: 
  Country: None (occurrence: None)
  Receive Date: 20071218
  Receipt Date: 20071203
  Transmission Date: 20080405
  Serious: Yes (Hospitalization)
  Sender: FDA-Public Use
  Company Number: S07-FRA-06342-01

PATIENT
  Age: 26 Year
  Sex: Male

DRUGS (8)
  1. CITALOPRAM HYDROBROMIDE [Suspect]
     Dosage: 20 MG QD PO
     Route: 048
     Dates: end: 20040501
  2. DEPAMIDE                             (VALPROMIDE) [Suspect]
     Indication: ABNORMAL BEHAVIOUR
     Dosage: 600 MG TID PO
     Route: 048
     Dates: end: 20040501
  3. CLONAZEPAM [Concomitant]
  4. TIAPRIDAL                    (TIAPRIDE) [Concomitant]
  5. RISPERDAL [Concomitant]
  6. CLOPIXOL (HYDROCHLORIDE) (ZUCLOPENTHIXOL HYDROCHLORIDE) [Concomitant]
  7. NORMACOL [Concomitant]
  8. DEBRIDAT (TRIMEBUTINE)\ [Concomitant]

REACTIONS (3)
  - AGITATION [None]
  - PANCREATITIS ACUTE [None]
  - PLEURAL EFFUSION [None]
